FAERS Safety Report 7773527-2 (Version None)
Quarter: 2011Q3

REPORT INFORMATION
  Report Type: 
  Country: None (occurrence: None)
  Receive Date: 20110922
  Receipt Date: 20110909
  Transmission Date: 20111222
  Serious: Yes (Other)
  Sender: FDA-Public Use
  Company Number: FR-GENENTECH-323156

PATIENT
  Sex: Female
  Weight: 69 kg

DRUGS (6)
  1. LUCENTIS [Suspect]
     Dosage: 0.5 MG, UNKNOWN
     Route: 031
     Dates: start: 20101103
  2. LUCENTIS [Suspect]
     Dosage: 0.5 MG, UNKNOWN
     Route: 031
     Dates: start: 20110307
  3. LUCENTIS [Suspect]
     Dosage: 0.5 MG, UNKNOWN
     Route: 031
     Dates: start: 20110511
  4. LUCENTIS [Suspect]
     Indication: AGE-RELATED MACULAR DEGENERATION
     Dosage: 0.5 MG, UNKNOWN
     Route: 031
     Dates: start: 20101004
  5. LUCENTIS [Suspect]
     Dosage: 0.5 MG, UNKNOWN
     Route: 031
     Dates: start: 20101129
  6. LUCENTIS [Suspect]
     Dosage: 0.5 MG, UNKNOWN
     Route: 031
     Dates: start: 20110711

REACTIONS (11)
  - HEART RATE ABNORMAL [None]
  - FATIGUE [None]
  - DYSGEUSIA [None]
  - GENERAL PHYSICAL HEALTH DETERIORATION [None]
  - CHRONIC OBSTRUCTIVE PULMONARY DISEASE [None]
  - TREMOR [None]
  - ANAEMIA [None]
  - ASTHENIA [None]
  - MALAISE [None]
  - NAUSEA [None]
  - BACK PAIN [None]
